FAERS Safety Report 6699487-3 (Version None)
Quarter: 2010Q2

REPORT INFORMATION
  Report Type: 
  Country: None (occurrence: None)
  Receive Date: 20100426
  Receipt Date: 20100420
  Transmission Date: 20101027
  Serious: Yes (Death, Life-Threatening, Hospitalization, Disabling)
  Sender: FDA-Public Use
  Company Number: WAES 0907FRA00023

PATIENT
  Age: 44 Year
  Sex: Female

DRUGS (20)
  1. CAP VORINOSTAT [Suspect]
     Indication: NON-SMALL CELL LUNG CANCER
     Dosage: 400 MG/DAILY; PO
     Route: 048
     Dates: start: 20090624, end: 20090703
  2. INJ GEMICITABINE [Suspect]
     Indication: NON-SMALL CELL LUNG CANCER
     Dosage: 1250 MG/M(2) DAILY; IV
     Route: 042
     Dates: start: 20090626, end: 20090626
  3. CISPLATIN [Suspect]
     Indication: NON-SMALL CELL LUNG CANCER
     Dosage: 75 MG/M(2) DAILY; IV
     Route: 042
     Dates: start: 20090626, end: 20090626
  4. EMEND [Concomitant]
  5. ACETAMINOPHEN AND CODEINE PHOSPHATE [Concomitant]
  6. ACETAMINOPHEN- PROPOXYPHENE HCL TAB [Concomitant]
  7. ENOXAPARIN SODIUM [Concomitant]
  8. ESOMEPRAZOLE MAGNESIUM [Concomitant]
  9. FENTANYL CITRATE [Concomitant]
  10. FONDAPARINUX SODIUM [Concomitant]
  11. KETOPROFEN [Concomitant]
  12. METHYLPREDNISOLONE SODIUM SUCCINATE [Concomitant]
  13. METOCLOPRAMIDE HYDROCHLORIDE [Concomitant]
  14. NEFOPAM HCL [Concomitant]
  15. OMEPRAZOLE [Concomitant]
  16. ONDANSETRON HYDROCHLORIDE [Concomitant]
  17. POLYETHYLENE FLYCOL 4000 [Concomitant]
  18. PREDNISOLONE SODIUM METASULFOBENZOATE [Concomitant]
  19. PREGABALIN [Concomitant]
  20. TINZAPARIN SODIUM [Concomitant]

REACTIONS (10)
  - APPARENT LIFE THREATENING EVENT [None]
  - CARDIAC VALVE VEGETATION [None]
  - DISEASE PROGRESSION [None]
  - ENDOCARDITIS [None]
  - GENERAL PHYSICAL HEALTH DETERIORATION [None]
  - HYPOXIA [None]
  - ISCHAEMIC STROKE [None]
  - STAPHYLOCOCCUS TEST POSITIVE [None]
  - THROMBOSIS [None]
  - VISUAL FIELD DEFECT [None]
